FAERS Safety Report 6267191-1 (Version None)
Quarter: 2009Q3

REPORT INFORMATION
  Report Type: 
  Country: None (occurrence: None)
  Receive Date: 20090714
  Receipt Date: 20090609
  Transmission Date: 20100115
  Serious: No
  Sender: FDA-Public Use
  Company Number: US-BAYER-200911768BCC

PATIENT
  Age: 45 Year
  Sex: Female
  Weight: 50 kg

DRUGS (3)
  1. ALEVE [Suspect]
     Indication: BACK PAIN
     Dosage: TOOK ONE OR TWO ALEVE TABLETS
     Route: 048
  2. ALEVE [Suspect]
     Indication: DYSMENORRHOEA
     Dosage: UNIT DOSE: 220 MG
     Route: 048
     Dates: start: 20090609, end: 20090609
  3. NAPROXEN SODIUM [Suspect]
     Indication: BACK PAIN
     Dosage: TOOK 1 OR 2
     Route: 048

REACTIONS (7)
  - ABDOMINAL DISTENSION [None]
  - ABDOMINAL PAIN [None]
  - DIARRHOEA [None]
  - EYE SWELLING [None]
  - EYELID OEDEMA [None]
  - RASH PAPULAR [None]
  - SWELLING FACE [None]
